FAERS Safety Report 24213772 (Version 2)
Quarter: 2024Q3

REPORT INFORMATION
  Report Type: Spontaneous
  Country: CZ (occurrence: CZ)
  Receive Date: 20240815
  Receipt Date: 20240913
  Transmission Date: 20241017
  Serious: Yes (Death, Hospitalization)
  Sender: PFIZER
  Company Number: CZ-Orion Corporation ORION PHARMA-TREX2024-0209

PATIENT
  Age: 71 Year
  Sex: Female

DRUGS (1)
  1. METHOTREXATE SODIUM [Suspect]
     Active Substance: METHOTREXATE SODIUM
     Indication: Rheumatoid arthritis
     Dosage: 15 MG, 1X/DAY
     Route: 048
     Dates: start: 20220621, end: 20220705

REACTIONS (6)
  - Inappropriate schedule of product administration [Fatal]
  - Overdose [Fatal]
  - Aphthous ulcer [Fatal]
  - Skin lesion [Fatal]
  - Pancytopenia [Fatal]
  - Medication error [Fatal]

NARRATIVE: CASE EVENT DATE: 20220101
